FAERS Safety Report 6653073-X (Version None)
Quarter: 2010Q1

REPORT INFORMATION
  Report Type: 
  Country: None (occurrence: None)
  Receive Date: 20100326
  Receipt Date: 20100317
  Transmission Date: 20100710
  Serious: Yes (Hospitalization, Other)
  Sender: FDA-Public Use
  Company Number: PHHY2010FR10619

PATIENT
  Sex: Male

DRUGS (13)
  1. RASILEZ [Suspect]
     Indication: HYPERTENSION
     Dosage: 150 MG, QD
     Route: 048
     Dates: start: 20100115, end: 20100127
  2. NOVOMIX [Concomitant]
     Dosage: 38 IU IN THE MORNING AND 8 IU IN THE EVENING
     Route: 065
     Dates: start: 20100121
  3. ATENOLOL [Concomitant]
     Dosage: 25 MG, BID
     Route: 065
  4. FUROSEMIDE [Concomitant]
     Dosage: 20 MG, QD
  5. FUROSEMIDE [Concomitant]
     Dosage: 60 MG, QD
     Route: 065
     Dates: start: 20100106
  6. PREDNISONE TAB [Concomitant]
     Dosage: 2 DF, QD
     Route: 065
  7. TAHOR [Concomitant]
     Dosage: 10 MG, QD
     Route: 065
  8. PREVISCAN [Concomitant]
     Dosage: 3/4 DF, QD
     Route: 065
     Dates: start: 20091230
  9. EQUANIL [Concomitant]
     Dosage: 400 MG, QD
     Route: 065
  10. XYZAL [Concomitant]
     Dosage: 5 MG, QD
     Route: 065
  11. DISCOTRINE [Concomitant]
     Dosage: 10 MG PER 24 HOURS, QD
     Route: 065
  12. MIANSERIN [Concomitant]
     Dosage: 30 MG, BID
     Route: 065
  13. CALPEROS [Concomitant]
     Dosage: 500 MG, BID
     Route: 065

REACTIONS (11)
  - ANGIOEDEMA [None]
  - DYSPHAGIA [None]
  - ENZYME ABNORMALITY [None]
  - ENZYME ACTIVITY DECREASED [None]
  - HEART SOUNDS ABNORMAL [None]
  - LYMPHADENOPATHY [None]
  - MACROGLOSSIA [None]
  - OEDEMA PERIPHERAL [None]
  - PALATAL OEDEMA [None]
  - RHINOVIRUS INFECTION [None]
  - RIGHT VENTRICULAR FAILURE [None]
